FAERS Safety Report 6723248-X (Version None)
Quarter: 2010Q2

REPORT INFORMATION
  Report Type: 
  Country: None (occurrence: None)
  Receive Date: 20100513
  Receipt Date: 20100504
  Transmission Date: 20101027
  Serious: Yes (Hospitalization)
  Sender: FDA-Public Use
  Company Number: BR-ABBOTT-10P-020-0642124-00

PATIENT
  Sex: Female
  Weight: 15 kg

DRUGS (2)
  1. RITONAVIR ORAL SOLUTION [Suspect]
     Indication: HIV INFECTION
     Route: 048
     Dates: start: 20100113
  2. DARUNAVIR [Concomitant]
     Indication: HIV INFECTION
     Route: 048
     Dates: start: 20100324

REACTIONS (1)
  - ASTHMATIC CRISIS [None]
